FAERS Safety Report 4700104-X (Version None)
Quarter: 2005Q1

REPORT INFORMATION
  Report Type: 
  Country: None (occurrence: None)
  Receive Date: 20050124
  Receipt Date: 20050124
  Transmission Date: 20050727
  Serious: Yes (Disabling)
  Sender: FDA-Public Use
  Company Number: None

PATIENT
  Age: 49 Year
  Sex: Female
  Weight: 52.1637 kg

DRUGS (2)
  1. ZICAM REGULAR MTXX [Suspect]
     Indication: NASOPHARYNGITIS
     Dosage: EACH NOSTRAL TWICE A DAY NASAL
     Route: 045
     Dates: start: 20050401, end: 20050621
  2. ZICAM REGULAR MTXX [Suspect]
     Indication: SINUS DISORDER
     Dosage: EACH NOSTRAL TWICE A DAY NASAL
     Route: 045
     Dates: start: 20050401, end: 20050621

REACTIONS (3)
  - AGEUSIA [None]
  - ANOSMIA [None]
  - BURNING SENSATION [None]
